FAERS Safety Report 17052378 (Version 1)
Quarter: 2019Q4

REPORT INFORMATION
  Report Type: Spontaneous
  Country: US (occurrence: US)
  Receive Date: 20191119
  Receipt Date: 20191119
  Transmission Date: 20200122
  Serious: Yes (Disabling)
  Sender: FDA-Public Use
  Company Number: None

PATIENT
  Age: 40 Year
  Sex: Female
  Weight: 76.5 kg

DRUGS (1)
  1. SOLOSEC [Suspect]
     Active Substance: SECNIDAZOLE
     Indication: BACTERIAL VULVOVAGINITIS
     Dosage: ?          QUANTITY:1 PACKET;OTHER FREQUENCY:ONCE;OTHER ROUTE:SPRINKLED ON YOGURT, AS DIRECTED?
     Dates: start: 20191116, end: 20191116

REACTIONS (3)
  - Nausea [None]
  - Migraine [None]
  - Vomiting projectile [None]

NARRATIVE: CASE EVENT DATE: 20191116
